FAERS Safety Report 4896622-4 (Version None)
Quarter: 2005Q4

REPORT INFORMATION
  Report Type: 
  Country: None (occurrence: None)
  Receive Date: 20051223
  Receipt Date: 20050901
  Transmission Date: 20060501
  Serious: No
  Sender: FDA-Public Use
  Company Number: 05P-163-0310060-00

PATIENT
  Age: 47 Year
  Sex: Male
  Weight: 81.6475 kg

DRUGS (12)
  1. HUMIRA [Suspect]
     Indication: RHEUMATOID ARTHRITIS
     Dosage: 40 MG, 1 IN 2 WK, SUBCUTANEOUS
     Route: 058
     Dates: start: 20050611
  2. METHOTREXATE [Concomitant]
  3. FOLATE [Concomitant]
  4. MELOXICAM [Concomitant]
  5. LEXAPRO [Concomitant]
  6. ROSIGLITAZONE MALEATE [Concomitant]
  7. GLUCOPHAGE [Concomitant]
  8. ACETYLSALICYLIC ACID SRT [Concomitant]
  9. LEVOTHYROXINE SODIUM [Concomitant]
  10. FENOFIBRATE [Concomitant]
  11. DARVOCET [Concomitant]
  12. FROVA [Concomitant]

REACTIONS (1)
  - STAPHYLOCOCCAL INFECTION [None]
